FAERS Safety Report 19472424 (Version 4)
Quarter: 2021Q4

REPORT INFORMATION
  Report Type: Spontaneous
  Country: JP (occurrence: JP)
  Receive Date: 20210629
  Receipt Date: 20211019
  Transmission Date: 20220303
  Serious: Yes (Life-Threatening, Hospitalization)
  Sender: FDA-Public Use
  Company Number: JP-ASTELLAS-2021JP012328

PATIENT
  Sex: Male
  Weight: 54 kg

DRUGS (18)
  1. PROGRAF [Suspect]
     Active Substance: TACROLIMUS
     Indication: Interstitial lung disease
     Dosage: 4 MG/DAY, UNKNOWN FREQ.
     Route: 065
     Dates: start: 2019
  2. PROGRAF [Suspect]
     Active Substance: TACROLIMUS
     Indication: Takayasu^s arteritis
     Route: 048
     Dates: start: 20190218, end: 20190426
  3. METHOTREXATE [Suspect]
     Active Substance: METHOTREXATE
     Indication: Takayasu^s arteritis
     Route: 048
     Dates: start: 20180907, end: 20180921
  4. TOCILIZUMAB [Suspect]
     Active Substance: TOCILIZUMAB
     Indication: Takayasu^s arteritis
     Route: 058
     Dates: start: 201812, end: 20181227
  5. CYCLOSPORINE [Suspect]
     Active Substance: CYCLOSPORINE
     Indication: Interstitial lung disease
     Route: 048
     Dates: start: 20190118, end: 20190205
  6. CYCLOSPORINE [Suspect]
     Active Substance: CYCLOSPORINE
     Indication: Takayasu^s arteritis
  7. PREDONINE [Concomitant]
     Active Substance: PREDNISOLONE
     Indication: Takayasu^s arteritis
     Route: 048
     Dates: start: 20180824
  8. PREDONINE [Concomitant]
     Active Substance: PREDNISOLONE
     Dosage: 50 MG/DAY, UNKNOWN FREQ.
     Route: 065
     Dates: start: 2018
  9. PREDONINE [Concomitant]
     Active Substance: PREDNISOLONE
     Dosage: 40 MG/DAY, UNKNOWN FREQ.
     Route: 065
     Dates: start: 2018
  10. PREDONINE [Concomitant]
     Active Substance: PREDNISOLONE
     Dosage: 30 MG/DAY, UNKNOWN FREQ.
     Route: 065
     Dates: start: 2018
  11. PREDONINE [Concomitant]
     Active Substance: PREDNISOLONE
     Dosage: 20 MG/DAY, UNKNOWN FREQ.
     Route: 065
  12. PREDONINE [Concomitant]
     Active Substance: PREDNISOLONE
     Dosage: 30 MG/DAY, UNKNOWN FREQ.
     Route: 065
  13. PREDONINE [Concomitant]
     Active Substance: PREDNISOLONE
     Dosage: 60 MG/DAY, UNKNOWN FREQ.
     Route: 065
     Dates: start: 2019
  14. PREDONINE [Concomitant]
     Active Substance: PREDNISOLONE
     Dosage: 40 MG/DAY, UNKNOWN FREQ.
     Route: 065
     Dates: start: 2019
  15. PREDONINE [Concomitant]
     Active Substance: PREDNISOLONE
     Dosage: 30 MG/DAY, UNKNOWN FREQ.
     Route: 065
     Dates: start: 2019
  16. PREDONINE [Concomitant]
     Active Substance: PREDNISOLONE
     Dosage: 20 MG/DAY, UNKNOWN FREQ.
     Route: 065
     Dates: start: 2019
  17. PREDONINE [Concomitant]
     Active Substance: PREDNISOLONE
     Dosage: 15 MG/DAY, UNKNOWN FREQ.
     Route: 065
     Dates: start: 2019
  18. PREDONINE [Concomitant]
     Active Substance: PREDNISOLONE
     Dosage: 5 MG/DAY, UNKNOWN FREQ.
     Route: 065
     Dates: start: 202106

REACTIONS (3)
  - Alveolar proteinosis [Recovering/Resolving]
  - Off label use [Unknown]
  - Off label use [Unknown]

NARRATIVE: CASE EVENT DATE: 20190101
